FAERS Safety Report 15202335 (Version 3)
Quarter: 2018Q3

REPORT INFORMATION
  Report Type: Spontaneous
  Country: IT (occurrence: US)
  Receive Date: 20180726
  Receipt Date: 20180824
  Transmission Date: 20181010
  Serious: Yes (Hospitalization, Other)
  Sender: FDA-Public Use
  Company Number: PHHY2018US051808

PATIENT
  Age: 70 Year
  Sex: Female

DRUGS (17)
  1. ATENOLOL. [Suspect]
     Active Substance: ATENOLOL
     Indication: PRODUCT USED FOR UNKNOWN INDICATION
     Route: 065
  2. ESTERIFIED OESTROGENS [Interacting]
     Active Substance: ESTROGENS, ESTERIFIED
     Indication: PRODUCT USED FOR UNKNOWN INDICATION
     Route: 065
  3. INFLUENZA VIRUS VACCINE [Interacting]
     Active Substance: INFLUENZA VIRUS VACCINE
     Dosage: UNK
     Route: 065
  4. ASPIRIN. [Interacting]
     Active Substance: ASPIRIN
     Dosage: UNK
     Route: 065
  5. ASPIRIN. [Interacting]
     Active Substance: ASPIRIN
     Dosage: UNK
     Route: 065
  6. CELECOXIB. [Interacting]
     Active Substance: CELECOXIB
     Indication: PRODUCT USED FOR UNKNOWN INDICATION
     Dosage: UNK
     Route: 065
  7. LISINOPRIL. [Interacting]
     Active Substance: LISINOPRIL
     Indication: PRODUCT USED FOR UNKNOWN INDICATION
     Route: 065
  8. ESTERIFIED OESTROGENS [Interacting]
     Active Substance: ESTROGENS, ESTERIFIED
     Route: 065
  9. ESTERIFIED OESTROGENS [Interacting]
     Active Substance: ESTROGENS, ESTERIFIED
     Route: 065
  10. PHENYTOIN. [Suspect]
     Active Substance: PHENYTOIN
     Route: 065
  11. LISINOPRIL. [Interacting]
     Active Substance: LISINOPRIL
     Dosage: UNK
     Route: 065
  12. ASPIRIN. [Interacting]
     Active Substance: ASPIRIN
     Indication: PRODUCT USED FOR UNKNOWN INDICATION
     Dosage: UNK
     Route: 065
  13. PHENYTOIN. [Suspect]
     Active Substance: PHENYTOIN
     Route: 065
  14. INFLUENZA VIRUS VACCINE [Interacting]
     Active Substance: INFLUENZA VIRUS VACCINE
     Indication: ANTIVIRAL PROPHYLAXIS
     Dosage: UNK
     Route: 065
  15. PHENYTOIN. [Suspect]
     Active Substance: PHENYTOIN
     Indication: PRODUCT USED FOR UNKNOWN INDICATION
     Route: 065
  16. LISINOPRIL. [Interacting]
     Active Substance: LISINOPRIL
     Dosage: UNK
     Route: 065
  17. CELECOXIB. [Interacting]
     Active Substance: CELECOXIB
     Route: 065

REACTIONS (19)
  - Nervous system disorder [Recovered/Resolved]
  - Diplopia [Recovered/Resolved]
  - Disorientation [Recovered/Resolved]
  - Eye pain [Recovered/Resolved]
  - Mental impairment [Recovered/Resolved]
  - Movement disorder [Recovered/Resolved]
  - Pyrexia [Recovered/Resolved]
  - Headache [Recovered/Resolved]
  - Vomiting [Recovered/Resolved]
  - Drug interaction [Recovered/Resolved]
  - Respiratory distress [Recovered/Resolved]
  - Nausea [Recovered/Resolved]
  - Coma [Recovered/Resolved]
  - Torticollis [Recovered/Resolved]
  - Eye disorder [Recovered/Resolved]
  - Cough [Recovered/Resolved]
  - Toxicity to various agents [Recovered/Resolved]
  - Delirium [Recovered/Resolved]
  - Stupor [Recovered/Resolved]
